FAERS Safety Report 8984512 (Version 1)
Quarter: 2012Q4

REPORT INFORMATION
  Report Type: Spontaneous
  Country: BE (occurrence: None)
  Receive Date: 20121214
  Receipt Date: 20121214
  Transmission Date: 20130627
  Serious: Yes (Hospitalization, Other)
  Sender: FDA-Public Use
  Company Number: 2012AP004185

PATIENT
  Age: 85 Year
  Sex: Female

DRUGS (7)
  1. MIRTAZAPINE (MIRTAZAPINE) [Suspect]
     Indication: DEPRESSION
  2. VENLAFAXINE [Suspect]
  3. BISOPROLOL (BISOPROLOL) [Concomitant]
  4. LEVOTHYROXINE SODIUM (LEVOTHYROXINE SODIUM) [Concomitant]
  5. SODIUM PICOSULFATE (SODIUM PICOSULFATE) [Concomitant]
  6. PANTOPRAZOLE (PANTOPRAZOLE) [Concomitant]
  7. CALCIUM D3 [Concomitant]

REACTIONS (27)
  - Serotonin syndrome [None]
  - Drug interaction [None]
  - General physical health deterioration [None]
  - Breath sounds abnormal [None]
  - Mydriasis [None]
  - Extensor plantar response [None]
  - Pyuria [None]
  - Loss of consciousness [None]
  - Confusional state [None]
  - Myoclonus [None]
  - Hypertonia [None]
  - Metabolic encephalopathy [None]
  - Urinary tract infection [None]
  - Tachycardia [None]
  - Hypertension [None]
  - Eye movement disorder [None]
  - Hyperreflexia [None]
  - Hyperhidrosis [None]
  - Restlessness [None]
  - Amnesia [None]
  - Bacterial test positive [None]
  - Blood lactic acid increased [None]
  - Blood urea increased [None]
  - Blood creatinine increased [None]
  - Glomerular filtration rate decreased [None]
  - Blood creatine phosphokinase increased [None]
  - Blood sodium increased [None]
